FAERS Safety Report 15035720 (Version 1)
Quarter: 2018Q2

REPORT INFORMATION
  Report Type: Spontaneous
  Country: FR (occurrence: FR)
  Receive Date: 20180620
  Receipt Date: 20180620
  Transmission Date: 20180711
  Serious: Yes (Hospitalization)
  Sender: FDA-Public Use
  Company Number: FR-PFIZER INC-2018242878

PATIENT
  Age: 66 Year
  Sex: Male
  Weight: 104 kg

DRUGS (18)
  1. NORVIR [Interacting]
     Active Substance: RITONAVIR
     Indication: HIV INFECTION
     Dosage: 100 MG, 1X/DAY
     Route: 048
     Dates: start: 201207, end: 20180502
  2. LARGACTIL [Concomitant]
     Active Substance: CHLORPROMAZINE
     Indication: PROPHYLAXIS OF NAUSEA AND VOMITING
     Dosage: 25 MG, SINGLE
     Route: 048
     Dates: start: 20180417, end: 20180417
  3. RAMIPRIL. [Concomitant]
     Active Substance: RAMIPRIL
     Dosage: 1.25 MG, 1X/DAY
     Route: 041
     Dates: start: 20170710, end: 20180423
  4. BECOTIDE [Concomitant]
     Active Substance: BECLOMETHASONE DIPROPIONATE
     Indication: CHRONIC OBSTRUCTIVE PULMONARY DISEASE
     Dosage: UNK
     Route: 055
     Dates: start: 201707, end: 20180427
  5. SPIRIVA [Concomitant]
     Active Substance: TIOTROPIUM BROMIDE MONOHYDRATE
     Indication: CHRONIC OBSTRUCTIVE PULMONARY DISEASE
     Dosage: 18 UG, 1X/DAY
     Dates: start: 201401
  6. LOPERAMIDE HYDROCHLORIDE. [Concomitant]
     Active Substance: LOPERAMIDE HYDROCHLORIDE
     Indication: DIARRHOEA
     Dosage: UNK
     Route: 048
     Dates: start: 201401
  7. METHYLPREDNISOLONE. [Concomitant]
     Active Substance: METHYLPREDNISOLONE
     Indication: PROPHYLAXIS OF NAUSEA AND VOMITING
     Dosage: 60 MG, SINGLE
     Route: 041
     Dates: start: 20180417, end: 20180417
  8. ALLOPURINOL. [Concomitant]
     Active Substance: ALLOPURINOL
     Dosage: 100 MG, 1X/DAY
     Route: 048
     Dates: start: 201707, end: 20180423
  9. GRANISETRON B BRAUN [Concomitant]
     Indication: PROPHYLAXIS OF NAUSEA AND VOMITING
     Dosage: 3 MG, SINGLE
     Route: 041
     Dates: start: 20180417, end: 20180417
  10. INTELENCE [Concomitant]
     Active Substance: ETRAVIRINE
     Indication: HIV INFECTION
     Dosage: 400 MG, 1X/DAY
     Route: 048
     Dates: start: 201207, end: 20180502
  11. ATORVASTATIN [Concomitant]
     Active Substance: ATORVASTATIN
     Dosage: 10 MG, 1X/DAY
     Route: 048
     Dates: start: 20171017, end: 20180423
  12. LOVENOX [Concomitant]
     Active Substance: ENOXAPARIN SODIUM
     Indication: DEEP VEIN THROMBOSIS
     Dosage: 20000 IU, 1X/DAY
     Route: 058
     Dates: start: 20180214, end: 201804
  13. DOCETAXEL. [Suspect]
     Active Substance: DOCETAXEL
     Indication: SQUAMOUS CELL CARCINOMA OF LUNG
     Dosage: 152 MG, SINGLE
     Route: 041
     Dates: start: 20180417, end: 20180417
  14. PREZISTA [Interacting]
     Active Substance: DARUNAVIR ETHANOLATE
     Indication: HIV INFECTION
     Dosage: 800 MG, 1X/DAY
     Route: 048
     Dates: start: 201207, end: 20180502
  15. KIVEXA [Concomitant]
     Active Substance: ABACAVIR SULFATE\LAMIVUDINE
     Indication: HIV INFECTION
     Dosage: 1 DF, 1X/DAY
     Route: 048
     Dates: start: 20130910, end: 20180502
  16. VENTOLINE [Concomitant]
     Active Substance: ALBUTEROL
     Indication: CHRONIC OBSTRUCTIVE PULMONARY DISEASE
     Dosage: UNK
     Route: 055
     Dates: start: 201707, end: 20180429
  17. CARBOPLATINE HOSPIRA [Interacting]
     Active Substance: CARBOPLATIN
     Indication: LUNG NEOPLASM MALIGNANT
     Dosage: 520 MG, SINGLE
     Route: 041
     Dates: start: 20180417, end: 20180417
  18. TRANXENE [Concomitant]
     Active Substance: CLORAZEPATE DIPOTASSIUM
     Indication: PROPHYLAXIS OF NAUSEA AND VOMITING
     Dosage: 20 MG, SINGLE
     Route: 041
     Dates: start: 20180417, end: 20180417

REACTIONS (6)
  - Stomatitis [Recovered/Resolved]
  - Folliculitis [Recovered/Resolved]
  - Acute kidney injury [Recovering/Resolving]
  - Skin ulcer [Recovered/Resolved]
  - Neutropenia [Recovered/Resolved]
  - Drug interaction [Recovered/Resolved]

NARRATIVE: CASE EVENT DATE: 20180417
